FAERS Safety Report 20938957 (Version 2)
Quarter: 2022Q2

REPORT INFORMATION
  Report Type: Spontaneous
  Country: US (occurrence: US)
  Receive Date: 20220609
  Receipt Date: 20220622
  Transmission Date: 20220720
  Serious: No
  Sender: FDA-Public Use
  Company Number: US-PFIZER INC-2020319604

PATIENT
  Age: 84 Year
  Sex: Female

DRUGS (2)
  1. XELJANZ [Suspect]
     Active Substance: TOFACITINIB CITRATE
     Dosage: 5 MG, 2X/DAY
  2. XELJANZ [Suspect]
     Active Substance: TOFACITINIB CITRATE
     Dosage: 5 MG, 1X/DAY [WHENEVER I AM FEELING GOOD I TAKE ONLY 1 TABLET A DAY]

REACTIONS (5)
  - Intentional product misuse [Unknown]
  - Illness [Unknown]
  - COVID-19 [Unknown]
  - Asthenia [Unknown]
  - Pain [Unknown]
